FAERS Safety Report 4927399-1 (Version None)
Quarter: 2006Q1

REPORT INFORMATION
  Report Type: 
  Country: None (occurrence: None)
  Receive Date: 20060228
  Receipt Date: 20051117
  Transmission Date: 20060701
  Serious: No
  Sender: FDA-Public Use
  Company Number: US-GLAXOSMITHKLINE-A0582732A

PATIENT
  Age: 53 Year
  Sex: Female

DRUGS (8)
  1. IMITREX [Suspect]
     Indication: MIGRAINE
     Dosage: 1INJ AS REQUIRED
     Route: 058
  2. IMITREX [Concomitant]
  3. COMPAZINE [Concomitant]
  4. DEPAKOTE [Concomitant]
  5. SEROQUEL [Concomitant]
  6. SULINDAC [Concomitant]
  7. KLONOPIN [Concomitant]
  8. LITHIUM [Concomitant]

REACTIONS (2)
  - BLOOD PRESSURE INCREASED [None]
  - NAUSEA [None]
